FAERS Safety Report 20773561 (Version 1)
Quarter: 2022Q2

REPORT INFORMATION
  Report Type: Spontaneous
  Country: US (occurrence: US)
  Receive Date: 20220502
  Receipt Date: 20220502
  Transmission Date: 20220721
  Serious: No
  Sender: FDA-Public Use
  Company Number: US-MAYNE PHARMA-2022MYN000036

PATIENT
  Age: 57 Year
  Sex: Female

DRUGS (1)
  1. FLUOROURACIL [Suspect]
     Active Substance: FLUOROURACIL
     Indication: Malignant melanoma
     Dosage: UNK
     Route: 061
     Dates: start: 20220124

REACTIONS (11)
  - Skin irritation [Unknown]
  - Skin lesion [Unknown]
  - Erythema [Unknown]
  - Dry skin [Unknown]
  - Skin burning sensation [Unknown]
  - Scab [Unknown]
  - Lip blister [Unknown]
  - Skin exfoliation [Unknown]
  - Sinus disorder [Unknown]
  - Eye irritation [Unknown]
  - Headache [Unknown]
